FAERS Safety Report 9186457 (Version 1)
Quarter: 2013Q1

REPORT INFORMATION
  Report Type: Spontaneous
  Country: US (occurrence: US)
  Receive Date: 20130325
  Receipt Date: 20130325
  Transmission Date: 20140127
  Serious: Yes (Hospitalization, Other)
  Sender: FDA-Public Use
  Company Number: US-SANOFI-AVENTIS-2013SA027805

PATIENT
  Age: 52 None
  Sex: Female
  Weight: 76.2 kg

DRUGS (7)
  1. PLAVIX [Suspect]
     Indication: STENT PLACEMENT
     Route: 048
     Dates: start: 20050929
  2. XALATAN [Suspect]
     Indication: GLAUCOMA
     Dates: start: 20030112
  3. ASPIRIN [Suspect]
  4. NORVASC [Concomitant]
  5. ATACAND [Concomitant]
  6. CRESTOR [Concomitant]
  7. ZETIA [Concomitant]

REACTIONS (10)
  - Neoplasm [Not Recovered/Not Resolved]
  - Arterial occlusive disease [Not Recovered/Not Resolved]
  - Breast disorder [Not Recovered/Not Resolved]
  - Dyspnoea [Not Recovered/Not Resolved]
  - Asthma [Not Recovered/Not Resolved]
  - Reading disorder [Not Recovered/Not Resolved]
  - Unevaluable event [Not Recovered/Not Resolved]
  - Brain injury [Not Recovered/Not Resolved]
  - Haemorrhagic stroke [Not Recovered/Not Resolved]
  - Cerebral haemorrhage [Not Recovered/Not Resolved]
